FAERS Safety Report 24953138 (Version 1)
Quarter: 2025Q1

REPORT INFORMATION
  Report Type: Spontaneous
  Country: GB (occurrence: GB)
  Receive Date: 20250211
  Receipt Date: 20250211
  Transmission Date: 20250409
  Serious: Yes (Disabling, Other)
  Sender: CURRAX PHARMACEUTICALS
  Company Number: None

PATIENT
  Age: 40 Year
  Sex: Female
  Weight: 127 kg

DRUGS (2)
  1. BUPROPION HYDROCHLORIDE\NALTREXONE HYDROCHLORIDE [Suspect]
     Active Substance: BUPROPION HYDROCHLORIDE\NALTREXONE HYDROCHLORIDE
     Indication: Weight control
     Dosage: 8MG/90MG, ONE TABLE IN MORNING
     Route: 065
     Dates: start: 20250203, end: 20250203
  2. SERTRALINE [Concomitant]
     Active Substance: SERTRALINE HYDROCHLORIDE
     Indication: Anxiety disorder

REACTIONS (2)
  - Haematemesis [Recovering/Resolving]
  - Gastroenteritis viral [Recovering/Resolving]

NARRATIVE: CASE EVENT DATE: 20250203
